FAERS Safety Report 10927600 (Version 2)
Quarter: 2015Q2

REPORT INFORMATION
  Report Type: Spontaneous
  Country: US (occurrence: US)
  Receive Date: 20150318
  Receipt Date: 20150416
  Transmission Date: 20150821
  Serious: Yes (Other)
  Sender: FDA-Public Use
  Company Number: US-BAXTER-2015BAX014222

PATIENT
  Age: 83 Year
  Sex: Male

DRUGS (2)
  1. GAMMAGARD LIQUID [Suspect]
     Active Substance: HUMAN IMMUNOGLOBULIN G
     Indication: OFF LABEL USE
  2. GAMMAGARD LIQUID [Suspect]
     Active Substance: HUMAN IMMUNOGLOBULIN G
     Indication: CHRONIC INFLAMMATORY DEMYELINATING POLYRADICULONEUROPATHY
     Dosage: 1ST DOSE
     Route: 042
     Dates: start: 20150309, end: 20150309

REACTIONS (5)
  - Dyspnoea [Recovered/Resolved]
  - Muscle spasms [Recovered/Resolved]
  - Feeling cold [Recovered/Resolved]
  - Blood pressure abnormal [Unknown]
  - Tremor [Recovering/Resolving]

NARRATIVE: CASE EVENT DATE: 20150309
